FAERS Safety Report 20205116 (Version 1)
Quarter: 2021Q4

REPORT INFORMATION
  Report Type: Spontaneous
  Country: US (occurrence: None)
  Receive Date: 20211220
  Receipt Date: 20211220
  Transmission Date: 20220303
  Serious: Yes (Other)
  Sender: FDA-Public Use
  Company Number: US-MDD US Operations-SUP202108-001605

PATIENT
  Age: 52 Year
  Sex: Female

DRUGS (2)
  1. OXTELLAR XR [Suspect]
     Active Substance: OXCARBAZEPINE
     Indication: Product used for unknown indication
     Dates: start: 2018
  2. OXTELLAR XR [Suspect]
     Active Substance: OXCARBAZEPINE
     Dates: start: 2018

REACTIONS (1)
  - Generalised tonic-clonic seizure [Unknown]

NARRATIVE: CASE EVENT DATE: 20210701
